FAERS Safety Report 5702732-1 (Version None)
Quarter: 2008Q2

REPORT INFORMATION
  Report Type: 
  Country: None (occurrence: None)
  Receive Date: 20080411
  Receipt Date: 20080331
  Transmission Date: 20081010
  Serious: Yes (Life-Threatening, Hospitalization)
  Sender: FDA-Public Use
  Company Number: B0501541A

PATIENT
  Age: 24 Year
  Sex: Male

DRUGS (6)
  1. WELLVONE [Suspect]
     Route: 048
     Dates: start: 20071030, end: 20071130
  2. TRIATEC [Suspect]
     Route: 048
     Dates: start: 20071030, end: 20071130
  3. ATORVASTATIN CALCIUM [Suspect]
     Route: 048
     Dates: start: 20071030, end: 20071130
  4. KARDEGIC [Suspect]
     Route: 048
     Dates: start: 20071112, end: 20071204
  5. AMLOR [Suspect]
     Route: 048
     Dates: start: 20071030, end: 20071203
  6. BRISTOPEN [Concomitant]
     Dates: start: 20071201, end: 20071204

REACTIONS (8)
  - DRUG ERUPTION [None]
  - MUCOUS MEMBRANE DISORDER [None]
  - PYREXIA [None]
  - RASH [None]
  - RASH ERYTHEMATOUS [None]
  - SKIN DISORDER [None]
  - STAPHYLOCOCCAL BACTERAEMIA [None]
  - TOXIC EPIDERMAL NECROLYSIS [None]
